FAERS Safety Report 12728703 (Version 1)
Quarter: 2016Q3

REPORT INFORMATION
  Report Type: Spontaneous
  Country: US (occurrence: US)
  Receive Date: 20160907
  Receipt Date: 20160907
  Transmission Date: 20161109
  Serious: Yes (Other)
  Sender: FDA-Public Use
  Company Number: None

PATIENT
  Age: 63 Year
  Sex: Female
  Weight: 52.16 kg

DRUGS (8)
  1. D-3 [Concomitant]
     Active Substance: CHOLECALCIFEROL
  2. FLONASE ALLERGY RELIEF [Suspect]
     Active Substance: FLUTICASONE PROPIONATE
     Indication: EUSTACHIAN TUBE DYSFUNCTION
     Dosage: 2 SPRAYS EACH NOSTRIL = 4 SPRAYS ONCE A DAY IN AM NASAL SPRAY
     Route: 045
     Dates: start: 20160823, end: 20160902
  3. K2/MK-7 [Concomitant]
  4. TRETINOIN. [Concomitant]
     Active Substance: TRETINOIN
  5. OMEGA 3 [Concomitant]
     Active Substance: OMEGA-3 FATTY ACIDS
  6. MULTIVITAMIN [Concomitant]
     Active Substance: VITAMINS
  7. CALCIUM [Concomitant]
     Active Substance: CALCIUM
  8. CURCUMIN/TURMERIC [Concomitant]

REACTIONS (5)
  - Nausea [None]
  - Chills [None]
  - Vomiting [None]
  - Diarrhoea [None]
  - Pyrexia [None]

NARRATIVE: CASE EVENT DATE: 20160828
